FAERS Safety Report 23553291 (Version 1)
Quarter: 2024Q1

REPORT INFORMATION
  Report Type: Spontaneous
  Country: US (occurrence: US)
  Receive Date: 20240222
  Receipt Date: 20240222
  Transmission Date: 20240410
  Serious: Yes (Death, Other)
  Sender: FDA-Public Use
  Company Number: US-AMGEN-USASP2024032519

PATIENT

DRUGS (10)
  1. RITUXIMAB [Suspect]
     Active Substance: RITUXIMAB
     Indication: Anti-LRP2 nephropathy
     Dosage: UNK
     Route: 065
  2. PREDNISONE [Concomitant]
     Active Substance: PREDNISONE
     Indication: Anti-LRP2 nephropathy
     Dosage: UNK
     Route: 065
  3. MYCOPHENOLATE MOFETIL [Concomitant]
     Active Substance: MYCOPHENOLATE MOFETIL
     Indication: Anti-LRP2 nephropathy
     Dosage: UNK
     Route: 065
  4. TACROLIMUS [Concomitant]
     Active Substance: TACROLIMUS
     Indication: Anti-LRP2 nephropathy
     Dosage: UNK
     Route: 065
  5. BORTEZOMIB [Concomitant]
     Active Substance: BORTEZOMIB
     Indication: Haematological malignancy
     Dosage: UNK
     Route: 065
  6. DEXAMETHASONE [Concomitant]
     Active Substance: DEXAMETHASONE
     Indication: Anti-LRP2 nephropathy
     Dosage: UNK
     Route: 065
  7. DARATUMUMAB [Concomitant]
     Active Substance: DARATUMUMAB
     Indication: Haematological malignancy
  8. VINCRISTINE [Concomitant]
     Active Substance: VINCRISTINE
     Indication: Haematological malignancy
  9. CYCLOPHOSPHAMIDE [Concomitant]
     Active Substance: CYCLOPHOSPHAMIDE
     Indication: Haematological malignancy
  10. DOXORUBICIN [Concomitant]
     Active Substance: DOXORUBICIN
     Indication: Haematological malignancy

REACTIONS (10)
  - Death [Fatal]
  - Plasma cell myeloma [Fatal]
  - Disseminated varicella zoster virus infection [Fatal]
  - Staphylococcal bacteraemia [Fatal]
  - Renal failure [Fatal]
  - End stage renal disease [Unknown]
  - Anti-LRP2 nephropathy [Unknown]
  - Drug effective for unapproved indication [Unknown]
  - Drug ineffective for unapproved indication [Unknown]
  - Off label use [Unknown]
